FAERS Safety Report 7287178-X (Version None)
Quarter: 2010Q4

REPORT INFORMATION
  Report Type: 
  Country: None (occurrence: None)
  Receive Date: 20101222
  Receipt Date: 20101116
  Transmission Date: 20110411
  Serious: Yes (Hospitalization)
  Sender: FDA-Public Use
  Company Number: UTC-002447

PATIENT
  Age: 57 Year
  Sex: Male
  Weight: 46.3 kg

DRUGS (3)
  1. TYVASO [Suspect]
     Indication: COR PULMONALE CHRONIC
     Dosage: 216 MCG (54 MCG, 4 IN 1 D), INHALATION
     Route: 055
     Dates: start: 20100303
  2. REVATIO [Concomitant]
  3. TRACLEER [Concomitant]

REACTIONS (2)
  - COUGH [None]
  - WHEEZING [None]
